FAERS Safety Report 12612686 (Version 5)
Quarter: 2016Q4

REPORT INFORMATION
  Report Type: Spontaneous
  Country: IE (occurrence: IE)
  Receive Date: 20160801
  Receipt Date: 20161003
  Transmission Date: 20170207
  Serious: Yes (Death, Life-Threatening, Hospitalization, Disabling)
  Sender: FDA-Public Use
  Company Number: PHFR2016IE006215

PATIENT
  Age: 57 Year
  Sex: Male

DRUGS (2)
  1. TAFINLAR [Suspect]
     Active Substance: DABRAFENIB MESYLATE
     Indication: MALIGNANT MELANOMA
     Dosage: 150 MG, BID
     Route: 048
     Dates: start: 20160108, end: 20160711
  2. MEKINIST [Suspect]
     Active Substance: TRAMETINIB DIMETHYL SULFOXIDE
     Indication: MALIGNANT MELANOMA
     Dosage: 2 MG, UNK
     Route: 048
     Dates: start: 20160119, end: 20160711

REACTIONS (4)
  - Malignant neoplasm progression [Fatal]
  - Confusional state [Not Recovered/Not Resolved]
  - Headache [Recovering/Resolving]
  - Fall [Recovering/Resolving]

NARRATIVE: CASE EVENT DATE: 20160711
